FAERS Safety Report 7681393-9 (Version None)
Quarter: 2011Q3

REPORT INFORMATION
  Report Type: 
  Country: None (occurrence: None)
  Receive Date: 20110812
  Receipt Date: 20110803
  Transmission Date: 20111222
  Serious: Yes (Other)
  Sender: FDA-Public Use
  Company Number: GB-ASTRAZENECA-2011SE46433

PATIENT
  Age: 37 Year
  Sex: Female

DRUGS (5)
  1. PHENYLEPHRINE HCL [Suspect]
     Dosage: 100 UG
  2. BUPIVACAINE HCL [Suspect]
     Route: 037
  3. SODIUM CHLORIDE [Concomitant]
     Dosage: 1000 ML
  4. MORPHINE [Suspect]
     Dosage: 300 UG
     Route: 037
  5. EPHEDRINE [Concomitant]

REACTIONS (21)
  - CORONARY ARTERY DISSECTION [None]
  - FLUSHING [None]
  - ARTERIOSPASM CORONARY [None]
  - CREPITATIONS [None]
  - HEART RATE DECREASED [None]
  - HEART RATE INCREASED [None]
  - HYPOXIA [None]
  - VENTRICULAR HYPOKINESIA [None]
  - ACUTE LEFT VENTRICULAR FAILURE [None]
  - NORMAL NEWBORN [None]
  - DYSPNOEA [None]
  - TROPONIN T INCREASED [None]
  - BLOOD PRESSURE INCREASED [None]
  - ACUTE MYOCARDIAL INFARCTION [None]
  - ELECTROCARDIOGRAM ST SEGMENT DEPRESSION [None]
  - ELECTROCARDIOGRAM ST SEGMENT ELEVATION [None]
  - OXYGEN SATURATION DECREASED [None]
  - BLOOD PRESSURE DECREASED [None]
  - DIZZINESS [None]
  - MATERNAL EXPOSURE DURING PREGNANCY [None]
  - PRESYNCOPE [None]
